FAERS Safety Report 5233929-5 (Version None)
Quarter: 2007Q1

REPORT INFORMATION
  Report Type: 
  Country: None (occurrence: None)
  Receive Date: 20070208
  Receipt Date: 20070205
  Transmission Date: 20070707
  Serious: Yes (Other)
  Sender: FDA-Public Use
  Company Number: GB-SANOFI-SYNTHELABO-A01200701278

PATIENT
  Sex: Female

DRUGS (1)
  1. ELOXATIN [Suspect]
     Route: 042

REACTIONS (3)
  - DYSPNOEA [None]
  - LARYNGOSPASM [None]
  - PARAESTHESIA ORAL [None]
